FAERS Safety Report 9822343 (Version 1)
Quarter: 2014Q1

REPORT INFORMATION
  Report Type: Spontaneous
  Country: BR (occurrence: BR)
  Receive Date: 20140116
  Receipt Date: 20140116
  Transmission Date: 20141002
  Serious: Yes (Other)
  Sender: FDA-Public Use
  Company Number: BR-SA-2014SA001934

PATIENT
  Age: 32 Year
  Sex: Female

DRUGS (4)
  1. LANTUS [Suspect]
     Indication: TYPE 2 DIABETES MELLITUS
     Dosage: DOSE:16 UNIT(S)
     Route: 058
     Dates: start: 2004
  2. TIMOLOL [Concomitant]
     Indication: GLAUCOMA
     Dosage: DOSE: ONE DROP PER DAY IN EACH EYE
     Route: 031
  3. CLIKSTAR [Concomitant]
     Indication: DEVICE THERAPY
     Route: 065
     Dates: end: 20140106
  4. GLIFAGE [Concomitant]
     Indication: TYPE 2 DIABETES MELLITUS
     Route: 048

REACTIONS (2)
  - Glaucoma [Not Recovered/Not Resolved]
  - Hypoacusis [Not Recovered/Not Resolved]
